FAERS Safety Report 13035276 (Version 1)
Quarter: 2016Q4

REPORT INFORMATION
  Report Type: Report from Study
  Country: TR (occurrence: TR)
  Receive Date: 20161216
  Receipt Date: 20161216
  Transmission Date: 20170207
  Serious: Yes (Other)
  Sender: FDA-Public Use
  Company Number: TR-BAXALTA-2016BLT008944

PATIENT
  Age: 13 Year
  Sex: Male

DRUGS (10)
  1. IMMUNATE STIM PLUS [Suspect]
     Active Substance: ANTIHEMOPHILIC FACTOR HUMAN
     Dosage: 3000 IU, FOR TREATMENT OF BLEED
     Route: 065
     Dates: start: 20151027
  2. IMMUNATE STIM PLUS [Suspect]
     Active Substance: ANTIHEMOPHILIC FACTOR HUMAN
     Dosage: 3000 IU,FOR TREATMENT FOR PAIN
     Route: 065
     Dates: start: 20160521
  3. IMMUNATE STIM PLUS [Suspect]
     Active Substance: ANTIHEMOPHILIC FACTOR HUMAN
     Dosage: 3000 IU, TREATMENT FOR BLEED
     Route: 065
     Dates: start: 20160209
  4. IMMUNATE STIM PLUS [Suspect]
     Active Substance: ANTIHEMOPHILIC FACTOR HUMAN
     Dosage: 3000 IU, TREATMENT FOR BLEED
     Route: 065
     Dates: start: 20160405
  5. IMMUNATE STIM PLUS [Suspect]
     Active Substance: ANTIHEMOPHILIC FACTOR HUMAN
     Indication: PROPHYLAXIS
     Dosage: UNK
     Route: 065
  6. IMMUNATE STIM PLUS [Suspect]
     Active Substance: ANTIHEMOPHILIC FACTOR HUMAN
     Dosage: 3000 IU, TREATMENT FOR BLEED
     Route: 065
     Dates: start: 20151227
  7. IMMUNATE STIM PLUS [Suspect]
     Active Substance: ANTIHEMOPHILIC FACTOR HUMAN
     Dosage: 3000 IU, TREATMENT FOR BLEED
     Route: 065
     Dates: start: 20160512
  8. IMMUNATE STIM PLUS [Suspect]
     Active Substance: ANTIHEMOPHILIC FACTOR HUMAN
     Dosage: 3000 IU, IN MORNING AND NIGHTS, TREATMENT FOR BLEED
     Route: 065
     Dates: start: 20160128
  9. IMMUNATE STIM PLUS [Suspect]
     Active Substance: ANTIHEMOPHILIC FACTOR HUMAN
     Dosage: 2000 IU, TREATMENT FOR BLEED
     Route: 065
     Dates: start: 20150225
  10. IMMUNATE STIM PLUS [Suspect]
     Active Substance: ANTIHEMOPHILIC FACTOR HUMAN
     Dosage: 3000 IU, TREATMENT FOR BLEED
     Route: 065
     Dates: start: 20160517

REACTIONS (9)
  - Spontaneous haemorrhage [Recovered/Resolved]
  - Haemarthrosis [Recovered/Resolved]
  - Traumatic haemorrhage [Recovered/Resolved]
  - Pain [Recovered/Resolved]
  - Fall [Recovered/Resolved]
  - Haemorrhage [Recovered/Resolved]
  - Arthralgia [Recovered/Resolved]
  - Haemorrhage [Recovered/Resolved]
  - Haemorrhage [Recovered/Resolved]

NARRATIVE: CASE EVENT DATE: 20150225
